FAERS Safety Report 6216954-7 (Version None)
Quarter: 2009Q2

REPORT INFORMATION
  Report Type: 
  Country: None (occurrence: None)
  Receive Date: 20090604
  Receipt Date: 20090525
  Transmission Date: 20091009
  Serious: Yes (Other)
  Sender: FDA-Public Use
  Company Number: 283807

PATIENT
  Age: 55 Year
  Sex: Female

DRUGS (1)
  1. (METHYLTHIONINIUM CHLORIDE) [Suspect]
     Indication: LYMPHADENECTOMY
     Dosage: 5 ML, OTHER

REACTIONS (6)
  - BREAST PAIN [None]
  - CELLULITIS [None]
  - ERYTHEMA [None]
  - INJECTION SITE REACTION [None]
  - PAIN [None]
  - TELANGIECTASIA [None]
